FAERS Safety Report 21734773 (Version 1)
Quarter: 2022Q4

REPORT INFORMATION
  Report Type: Report from Study
  Country: US (occurrence: US)
  Receive Date: 20221215
  Receipt Date: 20221215
  Transmission Date: 20230113
  Serious: No
  Sender: FDA-Public Use
  Company Number: US-ABBVIE-4196490

PATIENT
  Age: 58 Year
  Sex: Female

DRUGS (1)
  1. HUMIRA [Suspect]
     Active Substance: ADALIMUMAB
     Indication: Rheumatoid arthritis
     Route: 058

REACTIONS (8)
  - Injection site reaction [Unknown]
  - Sinusitis [Recovering/Resolving]
  - Fall [Recovering/Resolving]
  - Inflammation [Unknown]
  - Muscle spasms [Unknown]
  - Injection site vesicles [Unknown]
  - Pain in jaw [Unknown]
  - Pain [Unknown]

NARRATIVE: CASE EVENT DATE: 20221016
